FAERS Safety Report 25791676 (Version 2)
Quarter: 2025Q3

REPORT INFORMATION
  Report Type: Spontaneous
  Country: EU (occurrence: EU)
  Receive Date: 20250911
  Receipt Date: 20250921
  Transmission Date: 20251020
  Serious: Yes (Other)
  Sender: SANDOZ
  Company Number: EU-MLMSERVICE-20250826-PI621542-00232-2

PATIENT
  Age: 30 Year
  Sex: Male

DRUGS (8)
  1. CYCLOSPORINE [Suspect]
     Active Substance: CYCLOSPORINE
     Indication: Disease recurrence
     Dosage: 160 MG/DAY (80 MGX2), TAPERED AND  RAPIDLY STOPPED IN SEVERAL WEEKS.
     Route: 065
  2. CYCLOSPORINE [Suspect]
     Active Substance: CYCLOSPORINE
     Indication: Nephrotic syndrome
     Route: 065
  3. PREDNISONE [Suspect]
     Active Substance: PREDNISONE
     Indication: Disease recurrence
     Dosage: 60 MG, QD (TAPERED TO 0 MG/DAY)
     Route: 065
  4. PREDNISONE [Suspect]
     Active Substance: PREDNISONE
     Indication: Nephrotic syndrome
     Route: 065
  5. MYCOPHENOLATE MOFETIL [Suspect]
     Active Substance: MYCOPHENOLATE MOFETIL
     Indication: Nephrotic syndrome
     Route: 065
  6. MYCOPHENOLATE MOFETIL [Suspect]
     Active Substance: MYCOPHENOLATE MOFETIL
     Indication: Disease recurrence
  7. OBINUTUZUMAB [Concomitant]
     Active Substance: OBINUTUZUMAB
     Indication: Nephrotic syndrome
     Dosage: 1000 MG, ON DAYS 1 AND 15
     Route: 065
  8. OBINUTUZUMAB [Concomitant]
     Active Substance: OBINUTUZUMAB
     Indication: Glomerulonephritis minimal lesion

REACTIONS (2)
  - COVID-19 [Recovered/Resolved]
  - Peritonitis [Unknown]
